FAERS Safety Report 7032670-6 (Version None)
Quarter: 2010Q4

REPORT INFORMATION
  Report Type: 
  Country: None (occurrence: None)
  Receive Date: 20101007
  Receipt Date: 20100922
  Transmission Date: 20110411
  Serious: Yes (Hospitalization, Other)
  Sender: FDA-Public Use
  Company Number: PHEH2006US10880

PATIENT
  Sex: Male

DRUGS (6)
  1. AREDIA [Suspect]
  2. ZOMETA [Suspect]
  3. THALOMID [Concomitant]
     Dosage: 150 MG, QHS
  4. FLEXERIL [Concomitant]
  5. LISINOPRIL [Concomitant]
  6. HYDROCHLOROTHIAZIDE [Concomitant]

REACTIONS (37)
  - ABSCESS ORAL [None]
  - ACNE [None]
  - ANIMAL SCRATCH [None]
  - ANXIETY [None]
  - BASAL CELL CARCINOMA [None]
  - BONE DEBRIDEMENT [None]
  - BONE SWELLING [None]
  - CLOSTRIDIUM TEST POSITIVE [None]
  - DECREASED INTEREST [None]
  - DERMATITIS [None]
  - DIARRHOEA HAEMORRHAGIC [None]
  - DYSTHYMIC DISORDER [None]
  - ESCHERICHIA TEST POSITIVE [None]
  - FOLLICULITIS [None]
  - GENERAL PHYSICAL HEALTH DETERIORATION [None]
  - GINGIVAL EROSION [None]
  - IMPAIRED HEALING [None]
  - LEUKOPLAKIA [None]
  - METASTASIS [None]
  - MULTIPLE MYELOMA [None]
  - MUSCULOSKELETAL CHEST PAIN [None]
  - NECK PAIN [None]
  - NEOPLASM MALIGNANT [None]
  - NEUROPATHY PERIPHERAL [None]
  - OPEN WOUND [None]
  - OSTEOMYELITIS [None]
  - OSTEONECROSIS OF JAW [None]
  - PAIN IN EXTREMITY [None]
  - PAIN IN JAW [None]
  - PALPITATIONS [None]
  - PARAESTHESIA [None]
  - PLASMACYTOMA [None]
  - RADIOTHERAPY [None]
  - SECONDARY SEQUESTRUM [None]
  - TONGUE DISORDER [None]
  - TOOTH EXTRACTION [None]
  - UPPER RESPIRATORY TRACT INFECTION [None]
